FAERS Safety Report 6298854-X (Version None)
Quarter: 2009Q3

REPORT INFORMATION
  Report Type: 
  Country: None (occurrence: None)
  Receive Date: 20090803
  Receipt Date: 20081006
  Transmission Date: 20100115
  Serious: Yes (Other)
  Sender: FDA-Public Use
  Company Number: 2008-184855-NL

PATIENT
  Age: 80 Year
  Sex: Female
  Weight: 59 kg

DRUGS (2)
  1. REMERON [Suspect]
     Indication: SLEEP DISORDER
     Dosage: 7 MG DAILY
  2. BENGAY ULTRA STRENGTH PATCH [Suspect]
     Indication: NECK PAIN
     Dosage: DF TOPICAL
     Route: 061
     Dates: start: 20080923, end: 20080924

REACTIONS (1)
  - BLOOD PRESSURE INCREASED [None]
